FAERS Safety Report 4563011-1 (Version None)
Quarter: 2005Q1

REPORT INFORMATION
  Report Type: 
  Country: None (occurrence: None)
  Receive Date: 20050127
  Receipt Date: 20050117
  Transmission Date: 20050727
  Serious: Yes (Other)
  Sender: FDA-Public Use
  Company Number: US-ABBOTT-05P-163-0286951-00

PATIENT
  Sex: Male
  Weight: 72.64 kg

DRUGS (4)
  1. HUMIRA [Suspect]
     Indication: RHEUMATOID ARTHRITIS
     Route: 058
     Dates: start: 20040719
  2. HUMIRA [Suspect]
     Route: 058
     Dates: start: 20040401, end: 20040719
  3. DILTIAZEM HYDROCHLORIDE [Concomitant]
     Indication: CARDIAC DISORDER
     Route: 048
  4. TERAZOSIN [Concomitant]
     Indication: PROSTATIC DISORDER
     Route: 048

REACTIONS (2)
  - DIZZINESS [None]
  - HEART RATE DECREASED [None]
